FAERS Safety Report 10064971 (Version 2)
Quarter: 2014Q2

REPORT INFORMATION
  Report Type: Spontaneous
  Country: JP (occurrence: JP)
  Receive Date: 20140408
  Receipt Date: 20140611
  Transmission Date: 20141212
  Serious: Yes (Other)
  Sender: FDA-Public Use
  Company Number: JP-PFIZER INC-2014094524

PATIENT
  Sex: Male

DRUGS (3)
  1. LYRICA [Suspect]
     Indication: POST HERPETIC NEURALGIA
     Route: 048
  2. RENIVACE [Interacting]
     Route: 048
  3. CYMBALTA [Concomitant]
     Indication: POST HERPETIC NEURALGIA
     Route: 048

REACTIONS (12)
  - Convulsion [Not Recovered/Not Resolved]
  - Epilepsy [Unknown]
  - Loss of consciousness [Unknown]
  - Depressed level of consciousness [Unknown]
  - Head injury [Unknown]
  - Urinary retention [Unknown]
  - Drug interaction [Recovered/Resolved]
  - Face oedema [Recovered/Resolved]
  - Oedema peripheral [Recovered/Resolved]
  - Frustration [Unknown]
  - Gynaecomastia [Unknown]
  - Feeling abnormal [Unknown]
